FAERS Safety Report 8869848 (Version 1)
Quarter: 2012Q4

REPORT INFORMATION
  Report Type: 
  Country: IT (occurrence: IT)
  Receive Date: 20121028
  Receipt Date: 20121028
  Transmission Date: 20130627
  Serious: Yes (Other)
  Sender: FDA-Public Use
  Company Number: IT-JNJFOC-20121010652

PATIENT
  Age: 69 Year
  Sex: Female

DRUGS (8)
  1. OXYBUTYNIN HYDROCHLORIDE, S- [Suspect]
     Indication: URGE INCONTINENCE
     Route: 048
     Dates: start: 20120921, end: 20120928
  2. DEPAKIN [Suspect]
     Indication: BIPOLAR DISORDER
     Route: 048
  3. TRIATEC [Concomitant]
     Indication: HYPERTENSION
     Route: 065
  4. ZYPREXA [Concomitant]
     Route: 048
  5. ZYLORIC [Concomitant]
     Route: 048
  6. LANSOX [Concomitant]
     Route: 048
  7. FERO-GRAD [Concomitant]
     Route: 048
  8. THIAMINE/PYRIDOXINE/CYANOCOBALAMIN [Concomitant]
     Route: 048

REACTIONS (1)
  - Anuria [Recovering/Resolving]
